FAERS Safety Report 12069920 (Version 1)
Quarter: 2016Q1

REPORT INFORMATION
  Report Type: Spontaneous
  Country: US (occurrence: US)
  Receive Date: 20160211
  Receipt Date: 20160211
  Transmission Date: 20160526
  Serious: No
  Sender: FDA-Public Use
  Company Number: US-BAYER-2016-021218

PATIENT
  Age: 78 Year
  Sex: Male
  Weight: 87.98 kg

DRUGS (3)
  1. MIRALAX [Suspect]
     Active Substance: POLYETHYLENE GLYCOL 3350
     Indication: UNEVALUABLE EVENT
     Dosage: 4 DF, ONCE
     Route: 061
     Dates: start: 20160202, end: 20160202
  2. FINASTERIDE. [Concomitant]
     Active Substance: FINASTERIDE
  3. MIRALAX [Suspect]
     Active Substance: POLYETHYLENE GLYCOL 3350
     Indication: UNEVALUABLE EVENT
     Dosage: 14 DF, ONCE
     Route: 061
     Dates: start: 20160201, end: 20160201

REACTIONS (1)
  - Product use issue [None]

NARRATIVE: CASE EVENT DATE: 20160201
